FAERS Safety Report 22735815 (Version 2)
Quarter: 2023Q4

REPORT INFORMATION
  Report Type: Spontaneous
  Country: FR (occurrence: FR)
  Receive Date: 20230721
  Receipt Date: 20231025
  Transmission Date: 20240110
  Serious: Yes (Other)
  Sender: FDA-Public Use
  Company Number: FR-MYLANLABS-2021M1009769

PATIENT
  Age: 70 Year
  Sex: Male

DRUGS (2)
  1. LATANOPROST [Suspect]
     Active Substance: LATANOPROST
     Indication: Intraocular pressure increased
     Dosage: A DROP IN THE LEFT EYE EVERY EVENING 7 PM, QD
     Route: 065
  2. LATANOPROST [Suspect]
     Active Substance: LATANOPROST
     Dosage: 0.2 MILLILITER, QD, ADMINISTRATION OF SINGLE DOSE CONTAINER OF 0.2 ML EVERY EVENING AT 7 PM
     Route: 047
     Dates: start: 2021

REACTIONS (6)
  - Arrhythmia [Recovered/Resolved]
  - Atrial tachycardia [Recovered/Resolved]
  - Dizziness [Recovered/Resolved]
  - Wrong technique in product usage process [Recovered/Resolved]
  - Intentional product misuse [Unknown]
  - Intentional product use issue [Recovered/Resolved]
